FAERS Safety Report 12323774 (Version 1)
Quarter: 2016Q2

REPORT INFORMATION
  Report Type: Spontaneous
  Country: JP (occurrence: JP)
  Receive Date: 20160502
  Receipt Date: 20160502
  Transmission Date: 20160815
  Serious: Yes (Other)
  Sender: FDA-Public Use
  Company Number: JP-HQ SPECIALTY-JP-2016INT000223

PATIENT
  Age: 51 Year
  Sex: Female

DRUGS (4)
  1. CISPLATIN. [Suspect]
     Active Substance: CISPLATIN
     Indication: GASTRIC CANCER
     Dosage: UNK
  2. GIMERACIL [Suspect]
     Active Substance: GIMERACIL
     Indication: GASTRIC CANCER
     Dosage: UNK
  3. OTERACIL [Suspect]
     Active Substance: OTERACIL
     Indication: GASTRIC CANCER
     Dosage: UNK
  4. TEGAFUR [Suspect]
     Active Substance: TEGAFUR
     Indication: GASTRIC CANCER
     Dosage: UNK

REACTIONS (2)
  - Hepatitis B [Not Recovered/Not Resolved]
  - Hepatitis acute [Not Recovered/Not Resolved]
